FAERS Safety Report 10635208 (Version 1)
Quarter: 2014Q4

REPORT INFORMATION
  Report Type: Spontaneous
  Country: GB (occurrence: GB)
  Receive Date: 20141205
  Receipt Date: 20141205
  Transmission Date: 20150529
  Serious: Yes (Other)
  Sender: FDA-Public Use
  Company Number: GB-TEVA-525387ISR

PATIENT
  Age: 63 Year
  Sex: Male
  Weight: 71.9 kg

DRUGS (18)
  1. BISOPROLOL [Suspect]
     Active Substance: BISOPROLOL
     Dates: start: 20141008
  2. CODEINE PHOSPHATE [Concomitant]
     Active Substance: CODEINE PHOSPHATE
     Dates: start: 20140728
  3. LEVOTHYROXINE [Concomitant]
     Active Substance: LEVOTHYROXINE
     Dates: start: 20140728
  4. PREGABALIN. [Concomitant]
     Active Substance: PREGABALIN
     Dates: start: 20140728
  5. ISOSORBIDE MONONITRATE. [Concomitant]
     Active Substance: ISOSORBIDE MONONITRATE
     Dates: start: 20140728
  6. AMITRIPTYLINE HYDROCHLORIDE. [Concomitant]
     Active Substance: AMITRIPTYLINE HYDROCHLORIDE
     Dates: start: 20140728
  7. QUININE [Concomitant]
     Active Substance: QUININE
     Dates: start: 20140728
  8. ALENDRONIC ACID [Concomitant]
     Active Substance: ALENDRONIC ACID
     Dates: start: 20140728
  9. FOLIC ACID. [Concomitant]
     Active Substance: FOLIC ACID
     Dates: start: 20140728
  10. LANSOPRAZOLE. [Concomitant]
     Active Substance: LANSOPRAZOLE
     Dates: start: 20140728
  11. ASPIRIN. [Concomitant]
     Active Substance: ASPIRIN
     Dates: start: 20140728
  12. LANTUS [Concomitant]
     Active Substance: INSULIN GLARGINE
     Dates: start: 20140728, end: 20141105
  13. NOVORAPID [Concomitant]
     Active Substance: INSULIN ASPART
     Dates: start: 20140820, end: 20140917
  14. THIAMINE [Concomitant]
     Active Substance: THIAMINE
     Dates: start: 20140728, end: 20141013
  15. VITAMIN B SUBSTANCES [Concomitant]
     Dates: start: 20140728, end: 20141013
  16. ATORVASTATIN [Concomitant]
     Active Substance: ATORVASTATIN
     Dates: start: 20140728
  17. AMLODIPINE [Concomitant]
     Active Substance: AMLODIPINE BESYLATE
     Dates: start: 20141027
  18. LISINOPRIL. [Concomitant]
     Active Substance: LISINOPRIL
     Dates: start: 20140728

REACTIONS (3)
  - Peripheral swelling [Recovering/Resolving]
  - Generalised oedema [Recovering/Resolving]
  - Swelling face [Recovering/Resolving]

NARRATIVE: CASE EVENT DATE: 20141114
